FAERS Safety Report 7622115-7 (Version None)
Quarter: 2011Q3

REPORT INFORMATION
  Report Type: 
  Country: None (occurrence: None)
  Receive Date: 20110720
  Receipt Date: 20110323
  Transmission Date: 20111222
  Serious: Yes (Other)
  Sender: FDA-Public Use
  Company Number: SG-BAYER-2011-025546

PATIENT
  Age: 35 Year
  Sex: Female

DRUGS (4)
  1. DHASEDYL [Suspect]
  2. ASPIRIN [Suspect]
  3. CLARITHROMYCIN [Suspect]
  4. VOLTAREN [Suspect]

REACTIONS (1)
  - ANGIOEDEMA [None]
